FAERS Safety Report 8119104-5 (Version None)
Quarter: 2012Q1

REPORT INFORMATION
  Report Type: 
  Country: None (occurrence: None)
  Receive Date: 20120207
  Receipt Date: 20120131
  Transmission Date: 20120608
  Serious: Yes (Other)
  Sender: FDA-Public Use
  Company Number: PHHY2012TW008782

PATIENT
  Age: 68 Year
  Sex: Female

DRUGS (3)
  1. METHIMAZOLE [Suspect]
     Dosage: 15 MG, BID
  2. METHIMAZOLE [Suspect]
     Dosage: 15 MG/DAY
  3. PROPRANOLOL [Concomitant]

REACTIONS (14)
  - WOUND INFECTION PSEUDOMONAS [None]
  - BLISTER [None]
  - PAIN [None]
  - HYPERBILIRUBINAEMIA [None]
  - AZOTAEMIA [None]
  - CHOLECYSTITIS [None]
  - NECROTISING FASCIITIS [None]
  - AGRANULOCYTOSIS [None]
  - PYREXIA [None]
  - EXCORIATION [None]
  - SWELLING [None]
  - CYANOSIS [None]
  - PANCYTOPENIA [None]
  - CHILLS [None]
